FAERS Safety Report 9569631 (Version 3)
Quarter: 2014Q1

REPORT INFORMATION
  Report Type: Spontaneous
  Country: US (occurrence: US)
  Receive Date: 20130930
  Receipt Date: 20140226
  Transmission Date: 20141002
  Serious: Yes (Hospitalization)
  Sender: FDA-Public Use
  Company Number: US-AMGEN-USASP2013049028

PATIENT
  Age: 57 Year
  Sex: Female
  Weight: 78.9 kg

DRUGS (2)
  1. ENBREL [Suspect]
     Indication: PSORIATIC ARTHROPATHY
     Dosage: 50 MG, QWK
     Route: 058
     Dates: start: 20130423, end: 201308
  2. ENBREL [Suspect]
     Indication: PSORIASIS

REACTIONS (3)
  - Erythrodermic psoriasis [Not Recovered/Not Resolved]
  - Psoriasis [Recovered/Resolved]
  - Skin exfoliation [Recovered/Resolved]
